FAERS Safety Report 9715986 (Version 2)
Quarter: 2014Q1

REPORT INFORMATION
  Report Type: Not Available
  Country: FR (occurrence: FR)
  Receive Date: 20131127
  Receipt Date: 20140131
  Transmission Date: 20141002
  Serious: Yes (Other)
  Sender: FDA-Public Use
  Company Number: FR-PURDUE-GBR-2013-0016397

PATIENT
  Age: 19 Year
  Sex: Male

DRUGS (3)
  1. OXYCONTIN LP 60 MG, COMPRIME PELLICULE A LIBERATION PROLONGEE [Suspect]
     Indication: POISONING DELIBERATE
     Dosage: 60 MG, DAILY
     Route: 065
  2. LYRICA [Suspect]
     Indication: POISONING DELIBERATE
     Route: 065
  3. TRAMADOL [Suspect]
     Indication: POISONING DELIBERATE
     Route: 065

REACTIONS (3)
  - Drug dependence [Unknown]
  - Drug abuse [Unknown]
  - Aggression [Unknown]
